FAERS Safety Report 9384056 (Version 1)
Quarter: 2013Q3

REPORT INFORMATION
  Report Type: Spontaneous
  Country: US (occurrence: US)
  Receive Date: 20130705
  Receipt Date: 20130705
  Transmission Date: 20140515
  Serious: No
  Sender: FDA-Public Use
  Company Number: US-B.I. PHARMACEUTICALS,INC./RIDGEFIELD-2013-BI-19068BP

PATIENT
  Age: 61 Year
  Sex: Female
  Weight: 87 kg

DRUGS (6)
  1. SPIRIVA [Suspect]
     Indication: CHRONIC OBSTRUCTIVE PULMONARY DISEASE
     Dosage: 18 MCG
     Route: 055
     Dates: start: 2011
  2. ESTRADIOL [Concomitant]
     Indication: BLOOD OESTROGEN DECREASED
     Dosage: 1 MG
     Route: 048
  3. BENAZEPRIL [Concomitant]
     Indication: HYPERTENSION
     Dosage: 20 MG
     Route: 048
  4. ZOLPIDEM [Concomitant]
     Indication: INSOMNIA
     Dosage: 10 MG
     Route: 048
  5. PAXIL [Concomitant]
     Indication: DEPRESSION
     Dosage: 40 MG
     Route: 048
  6. PRAMIPEXOLE-GENERIC [Concomitant]
     Indication: RESTLESS LEGS SYNDROME
     Dosage: 50 MG
     Route: 048

REACTIONS (1)
  - Sleep apnoea syndrome [Not Recovered/Not Resolved]
